FAERS Safety Report 25064697 (Version 1)
Quarter: 2025Q1

REPORT INFORMATION
  Report Type: Report from Study
  Country: TW (occurrence: TW)
  Receive Date: 20250311
  Receipt Date: 20250311
  Transmission Date: 20250408
  Serious: Yes (Hospitalization)
  Sender: AMGEN
  Company Number: TW-AMGEN-TWNNI2025043482

PATIENT
  Age: 63 Year
  Sex: Male
  Weight: 58.1 kg

DRUGS (1)
  1. TARLATAMAB [Suspect]
     Active Substance: TARLATAMAB
     Indication: Small cell lung cancer
     Route: 040
     Dates: start: 20250227

REACTIONS (3)
  - Hepatitis acute [Not Recovered/Not Resolved]
  - Pyrexia [Not Recovered/Not Resolved]
  - Small cell lung cancer extensive stage [Not Recovered/Not Resolved]

NARRATIVE: CASE EVENT DATE: 20250301
